FAERS Safety Report 7771955-2 (Version None)
Quarter: 2011Q3

REPORT INFORMATION
  Report Type: 
  Country: None (occurrence: None)
  Receive Date: 20110922
  Receipt Date: 20100412
  Transmission Date: 20111222
  Serious: No
  Sender: FDA-Public Use
  Company Number: US-ASTRAZENECA-2009UW19872

PATIENT
  Sex: Male

DRUGS (7)
  1. LEVOTHYROXINE SODIUM [Concomitant]
     Dates: start: 20060120
  2. EFFEXOR XR [Concomitant]
     Dates: start: 20051025
  3. SEROQUEL [Suspect]
     Dosage: 100-200 MG
     Route: 048
     Dates: start: 20060112
  4. LIPITOR [Concomitant]
     Dates: start: 20060428
  5. GEODON [Concomitant]
     Dates: start: 20051001
  6. CLONAZEPAM [Concomitant]
     Dates: start: 20060213
  7. HYDROXYZINE HCL [Concomitant]
     Dates: start: 20060419

REACTIONS (3)
  - DIABETES MELLITUS [None]
  - POLYDIPSIA [None]
  - POLYURIA [None]
